FAERS Safety Report 23362961 (Version 2)
Quarter: 2024Q2

REPORT INFORMATION
  Report Type: Spontaneous
  Country: US (occurrence: US)
  Receive Date: 20240103
  Receipt Date: 20240408
  Transmission Date: 20240715
  Serious: Yes (Other)
  Sender: FDA-Public Use
  Company Number: US-BRISTOL-MYERS SQUIBB COMPANY-2023-188459

PATIENT
  Age: 75 Year
  Sex: Female

DRUGS (2)
  1. LENALIDOMIDE [Suspect]
     Active Substance: LENALIDOMIDE
     Indication: Plasma cell myeloma recurrent
     Dosage: TAKE 1 CAPSULE BY MOUTH EVERY DAY AFTER DIALYSIS DAYS FOR 21 DAYS ON THEN 7 DAYS OFF (28 DAY CYCLE L
     Route: 048
     Dates: start: 20231002
  2. LENALIDOMIDE [Suspect]
     Active Substance: LENALIDOMIDE
     Dosage: TAKE 1 CAPSULE BY  MOUTH DAILY (AFTER DIALYSIS ON DIALYSIS DAYS) FOR 14 DAYS ON  THEN 7 DAYS OFF

REACTIONS (4)
  - Blood pressure decreased [Recovered/Resolved]
  - Renal disorder [Unknown]
  - Off label use [Unknown]
  - Platelet count decreased [Not Recovered/Not Resolved]
